FAERS Safety Report 22142603 (Version 4)
Quarter: 2023Q2

REPORT INFORMATION
  Report Type: Spontaneous
  Country: ES (occurrence: ES)
  Receive Date: 20230327
  Receipt Date: 20230411
  Transmission Date: 20230721
  Serious: Yes (Other)
  Sender: FDA-Public Use
  Company Number: ES-ELI_LILLY_AND_COMPANY-ES202303009129

PATIENT
  Age: 56 Year
  Sex: Female

DRUGS (6)
  1. TALTZ [Suspect]
     Active Substance: IXEKIZUMAB
     Indication: Psoriatic arthropathy
     Dosage: UNK UNK, UNKNOWN
     Route: 065
     Dates: start: 202208
  2. TALTZ [Suspect]
     Active Substance: IXEKIZUMAB
     Dosage: UNK UNK, UNKNOWN
     Route: 065
  3. ARCOXIA [Concomitant]
     Active Substance: ETORICOXIB
     Indication: Inflammation
  4. ENALAPRIL [Concomitant]
     Active Substance: ENALAPRIL
     Indication: Blood pressure increased
  5. SERTRALINE [Concomitant]
     Active Substance: SERTRALINE HYDROCHLORIDE
     Indication: Depression
  6. KETAZOLAM [Concomitant]
     Active Substance: KETAZOLAM
     Indication: Depression

REACTIONS (7)
  - Fall [Unknown]
  - Rotator cuff syndrome [Unknown]
  - Weight increased [Unknown]
  - Palpitations [Unknown]
  - Helicobacter infection [Unknown]
  - Stress [Unknown]
  - Breast pain [Unknown]

NARRATIVE: CASE EVENT DATE: 20220901
